FAERS Safety Report 6199220-8 (Version None)
Quarter: 2009Q2

REPORT INFORMATION
  Report Type: 
  Country: None (occurrence: None)
  Receive Date: 20090522
  Receipt Date: 20090513
  Transmission Date: 20091009
  Serious: No
  Sender: FDA-Public Use
  Company Number: US-B.I. PHARMACEUTICALS,INC./RIDGEFIELD-2009-BP-06011BP

PATIENT
  Age: 74 Year
  Sex: Male

DRUGS (6)
  1. FLOMAX [Suspect]
     Indication: BENIGN PROSTATIC HYPERPLASIA
     Dosage: .4MG
     Route: 048
     Dates: start: 20090331
  2. SAW PALMETTO [Concomitant]
     Indication: BENIGN PROSTATIC HYPERPLASIA
  3. L-ARGININE [Concomitant]
     Indication: BENIGN PROSTATIC HYPERPLASIA
     Dates: start: 20090512
  4. VASOTEC [Concomitant]
     Indication: HYPERTENSION
  5. VALIUM [Concomitant]
     Indication: INSOMNIA
  6. ANTICOAGULANT ETHYLENEDIAMINE TETRAACETIC ACID (EDTA) [Concomitant]
     Indication: CAROTID ARTERY STENOSIS

REACTIONS (6)
  - ANXIETY [None]
  - BLOOD PRESSURE DECREASED [None]
  - BLOOD PRESSURE INCREASED [None]
  - COUGH [None]
  - INSOMNIA [None]
  - RHINITIS [None]
